FAERS Safety Report 25056472 (Version 1)
Quarter: 2025Q1

REPORT INFORMATION
  Report Type: Spontaneous
  Country: AU (occurrence: AU)
  Receive Date: 20250310
  Receipt Date: 20250310
  Transmission Date: 20250409
  Serious: Yes (Hospitalization)
  Sender: ASTELLAS
  Company Number: AU-ASTELLAS-2025-AER-013561

PATIENT
  Age: 6 Decade
  Sex: Female

DRUGS (1)
  1. VEOZAH [Suspect]
     Active Substance: FEZOLINETANT
     Indication: Product used for unknown indication
     Route: 065

REACTIONS (2)
  - Blood pressure increased [Recovered/Resolved]
  - Tachycardia [Unknown]
